FAERS Safety Report 20035111 (Version 1)
Quarter: 2021Q4

REPORT INFORMATION
  Report Type: Spontaneous
  Country: FR (occurrence: FR)
  Receive Date: 20211104
  Receipt Date: 20211104
  Transmission Date: 20220303
  Serious: Yes (Hospitalization)
  Sender: FDA-Public Use
  Company Number: None

PATIENT
  Age: 77 Year
  Sex: Male
  Weight: 70 kg

DRUGS (5)
  1. DEXAMETHASONE [Suspect]
     Active Substance: DEXAMETHASONE
     Indication: Plasma cell myeloma
     Dosage: 20 MILLIGRAM, CYCLE
     Route: 042
     Dates: start: 20210427, end: 20210801
  2. CIMETIDINE [Suspect]
     Active Substance: CIMETIDINE
     Indication: Premedication
     Dosage: 200 MILLIGRAM, CYCLE
     Route: 048
     Dates: start: 20210427, end: 20210801
  3. POLARAMINE [Suspect]
     Active Substance: DEXCHLORPHENIRAMINE MALEATE
     Indication: Premedication
     Dosage: 5 MILLIGRAM, CYCLE
     Route: 042
     Dates: start: 20210427, end: 20210801
  4. ACETAMINOPHEN [Suspect]
     Active Substance: ACETAMINOPHEN
     Indication: Premedication
     Dosage: 1 GRAM, CYCLE
     Route: 048
     Dates: start: 20210427, end: 20210801
  5. POMALIDOMIDE [Suspect]
     Active Substance: POMALIDOMIDE
     Indication: Plasma cell myeloma
     Dosage: 1 DOSAGE FORM, QD
     Route: 042
     Dates: start: 20210427, end: 202106

REACTIONS (1)
  - Cardiac failure [Recovering/Resolving]

NARRATIVE: CASE EVENT DATE: 20210614
